FAERS Safety Report 4587659-3 (Version None)
Quarter: 2005Q1

REPORT INFORMATION
  Report Type: 
  Country: None (occurrence: None)
  Receive Date: 20050215
  Receipt Date: 20050201
  Transmission Date: 20050727
  Serious: Yes (Death)
  Sender: FDA-Public Use
  Company Number: A-US2004-07975

PATIENT
  Age: 76 Year
  Sex: Male
  Weight: 61 kg

DRUGS (7)
  1. TRACLEER [Suspect]
     Indication: PULMONARY HYPERTENSION
     Dosage: 125 MG, BID, ORAL
     Route: 048
     Dates: start: 20030707, end: 20040512
  2. NIFEDIPINE [Concomitant]
  3. LASIX [Concomitant]
  4. WARFARIN SODIUM [Concomitant]
  5. ALBUTEROL [Concomitant]
  6. CITALOPRAM [Concomitant]
  7. LORAZEPAM [Concomitant]

REACTIONS (1)
  - CARDIO-RESPIRATORY ARREST [None]
